FAERS Safety Report 7400839-4 (Version None)
Quarter: 2011Q2

REPORT INFORMATION
  Report Type: 
  Country: None (occurrence: None)
  Receive Date: 20110407
  Receipt Date: 20110330
  Transmission Date: 20111010
  Serious: Yes (Disabling, Other)
  Sender: FDA-Public Use
  Company Number: PHHY2011GB26122

PATIENT
  Age: 55 Year
  Sex: Male

DRUGS (4)
  1. CANDESARTAN CILEXETIL [Concomitant]
  2. PRAVASTATIN SODIUM [Suspect]
     Indication: BLOOD CHOLESTEROL INCREASED
     Route: 048
  3. ASPIRIN [Concomitant]
  4. EZETIMIBE [Concomitant]

REACTIONS (2)
  - DYSPNOEA [None]
  - LUNG DISORDER [None]
